FAERS Safety Report 6103619-5 (Version None)
Quarter: 2009Q1

REPORT INFORMATION
  Report Type: 
  Country: None (occurrence: None)
  Receive Date: 20090302
  Receipt Date: 20090226
  Transmission Date: 20090719
  Serious: Yes (Other)
  Sender: FDA-Public Use
  Company Number: 040952

PATIENT
  Age: 63 Year
  Sex: Male
  Weight: 86.2 kg

DRUGS (18)
  1. SERTRALINE HCL [Suspect]
     Indication: DEPRESSION
     Dosage: 50 MG, QD; 50 MG, QOD FOR 10 DAYS
     Dates: start: 20070601, end: 20090201
  2. SERTRALINE HCL [Suspect]
     Indication: DEPRESSION
     Dosage: 50 MG, QD; 50 MG, QOD FOR 10 DAYS
     Dates: start: 20090201
  3. CLONIDINE [Concomitant]
  4. MULTIVITAMIN (VITAMIN NOS) [Concomitant]
  5. COREG [Concomitant]
  6. LASIX [Concomitant]
  7. POTASSIUM (POTASSIUM) [Concomitant]
  8. URSOGIOL [Concomitant]
  9. WARFARIN SODIUM [Concomitant]
  10. COLACE (DOCUSATE SODIUM) [Concomitant]
  11. PREDNISOLONE [Concomitant]
  12. PROGRAF [Concomitant]
  13. CELLCEPT [Concomitant]
  14. IRON (IRON) [Concomitant]
  15. MAGNESIUM )(MAGNESIUM) [Concomitant]
  16. PENICILLIN-VK [Concomitant]
  17. PROTONIX [Concomitant]
  18. FISH OIL (FISH OIL) [Concomitant]

REACTIONS (4)
  - BREAST CANCER MALE [None]
  - GYNAECOMASTIA [None]
  - INFLAMMATORY CARCINOMA OF THE BREAST [None]
  - MASTITIS [None]
